FAERS Safety Report 8810870 (Version 1)
Quarter: 2012Q4

REPORT INFORMATION
  Report Type: Spontaneous
  Country: US (occurrence: None)
  Receive Date: 20120924
  Receipt Date: 20120924
  Transmission Date: 20130627
  Serious: Yes (Disabling)
  Sender: FDA-Public Use
  Company Number: None

PATIENT
  Age: 58 Year
  Sex: Male
  Weight: 63.5 kg

DRUGS (2)
  1. PROPECIA [Suspect]
     Indication: HAIR LOSS
     Route: 048
     Dates: start: 19980101, end: 20100101
  2. FINASTERIDE [Suspect]
     Route: 048
     Dates: start: 20100101, end: 20120920

REACTIONS (3)
  - Cognitive disorder [None]
  - Peyronie^s disease [None]
  - Loss of libido [None]
